FAERS Safety Report 17920283 (Version 2)
Quarter: 2020Q3

REPORT INFORMATION
  Report Type: Spontaneous
  Country: US (occurrence: US)
  Receive Date: 20200620
  Receipt Date: 20200825
  Transmission Date: 20201103
  Serious: Yes (Hospitalization, Other)
  Sender: FDA-Public Use
  Company Number: US-TEVA-2020-US-1788937

PATIENT
  Age: 34 Year
  Sex: Male

DRUGS (8)
  1. MIRTAZAPINE. [Concomitant]
     Active Substance: MIRTAZAPINE
     Route: 065
  2. LORTAB [Suspect]
     Active Substance: ACETAMINOPHEN\HYDROCODONE BITARTRATE
     Route: 065
     Dates: start: 1995, end: 2010
  3. PRAZOSIN. [Concomitant]
     Active Substance: PRAZOSIN
     Route: 065
  4. PRAVASTATIN. [Concomitant]
     Active Substance: PRAVASTATIN
     Route: 065
  5. FENTANYL. [Suspect]
     Active Substance: FENTANYL
     Indication: PRODUCT USED FOR UNKNOWN INDICATION
     Route: 065
     Dates: start: 1995, end: 2010
  6. METHOCARBAMOL. [Concomitant]
     Active Substance: METHOCARBAMOL
  7. MORPHINE [Suspect]
     Active Substance: MORPHINE
     Route: 065
  8. PROPRANOLOL [Concomitant]
     Active Substance: PROPRANOLOL HYDROCHLORIDE

REACTIONS (5)
  - Impaired driving ability [Unknown]
  - Osteochondrosis [Recovered/Resolved]
  - Loss of consciousness [Recovered/Resolved]
  - Drug dependence [Unknown]
  - Imprisonment [Unknown]

NARRATIVE: CASE EVENT DATE: 2000
